FAERS Safety Report 5725835-4 (Version None)
Quarter: 2008Q2

REPORT INFORMATION
  Report Type: 
  Country: None (occurrence: None)
  Receive Date: 20080429
  Receipt Date: 20080417
  Transmission Date: 20081010
  Serious: Yes (Hospitalization, Other)
  Sender: FDA-Public Use
  Company Number: 2008AP000817

PATIENT
  Age: 75 Year
  Sex: Male

DRUGS (3)
  1. LITHIUM CARBONATE CAP [Suspect]
     Indication: BIPOLAR I DISORDER
     Dosage: 450 MG; BID
  2. RISPERDAL [Suspect]
     Indication: BIPOLAR I DISORDER
     Dosage: 2 MG; HS
  3. QUETIAPINE FUMARATE [Concomitant]

REACTIONS (6)
  - DRUG INTERACTION [None]
  - ENCEPHALOPATHY [None]
  - MANIA [None]
  - REFUSAL OF TREATMENT BY PATIENT [None]
  - THERAPEUTIC AGENT TOXICITY [None]
  - WHITE BLOOD CELL COUNT INCREASED [None]
